FAERS Safety Report 6205441-8 (Version None)
Quarter: 2009Q2

REPORT INFORMATION
  Report Type: 
  Country: None (occurrence: None)
  Receive Date: 20090527
  Receipt Date: 20090323
  Transmission Date: 20091009
  Serious: No
  Sender: FDA-Public Use
  Company Number: US-ABBOTT-09P-163-0564221-00

PATIENT
  Sex: Female
  Weight: 56.296 kg

DRUGS (5)
  1. SIMCOR [Suspect]
     Indication: BLOOD CHOLESTEROL INCREASED
     Dosage: 500MG/20MG
     Route: 048
     Dates: start: 20090126
  2. SINGULAIR [Concomitant]
     Indication: HYPERSENSITIVITY
     Route: 048
  3. ASPIRIN [Concomitant]
     Indication: DRUG USE FOR UNKNOWN INDICATION
     Route: 048
  4. CALCIUM [Concomitant]
     Indication: OSTEOPENIA
  5. ALENDRONATE [Concomitant]
     Indication: OSTEOPENIA
     Route: 048

REACTIONS (7)
  - ARTHRALGIA [None]
  - ASTHENIA [None]
  - BURSITIS [None]
  - MALAISE [None]
  - MIDDLE INSOMNIA [None]
  - MUSCULOSKELETAL PAIN [None]
  - NAUSEA [None]
